FAERS Safety Report 7519204-4 (Version None)
Quarter: 2011Q2

REPORT INFORMATION
  Report Type: 
  Country: None (occurrence: None)
  Receive Date: 20110602
  Receipt Date: 20110328
  Transmission Date: 20111010
  Serious: No
  Sender: FDA-Public Use
  Company Number: US-BRISTOL-MYERS SQUIBB COMPANY-15644859

PATIENT
  Age: 5 Decade
  Sex: Female

DRUGS (1)
  1. KOMBIGLYZE XR [Suspect]
     Indication: DIABETES MELLITUS
     Dosage: 1DF=5-500(UNIT NOT SPECIFIED)
     Route: 048

REACTIONS (4)
  - VOMITING [None]
  - NAUSEA [None]
  - DIARRHOEA [None]
  - HEADACHE [None]
